FAERS Safety Report 7561021-3 (Version None)
Quarter: 2011Q2

REPORT INFORMATION
  Report Type: 
  Country: None (occurrence: None)
  Receive Date: 20110621
  Receipt Date: 20100427
  Transmission Date: 20111010
  Serious: No
  Sender: FDA-Public Use
  Company Number: US-ASTRAZENECA-2010SE19158

PATIENT
  Sex: Female

DRUGS (1)
  1. ATACAND HCT [Suspect]
     Route: 048

REACTIONS (5)
  - DISORIENTATION [None]
  - SOMNOLENCE [None]
  - COORDINATION ABNORMAL [None]
  - BALANCE DISORDER [None]
  - DIZZINESS [None]
